FAERS Safety Report 18027721 (Version 3)
Quarter: 2025Q1

REPORT INFORMATION
  Report Type: Spontaneous
  Country: LT (occurrence: LT)
  Receive Date: 20200715
  Receipt Date: 20250305
  Transmission Date: 20250409
  Serious: Yes (Hospitalization, Other)
  Sender: JOHNSON AND JOHNSON
  Company Number: LT-CELLTRION INC.-2020LT023696

PATIENT
  Age: 55 Year
  Sex: Female

DRUGS (5)
  1. REMICADE [Suspect]
     Active Substance: INFLIXIMAB
     Indication: Rheumatoid arthritis
     Route: 042
     Dates: start: 20190611, end: 20200624
  2. REMICADE [Suspect]
     Active Substance: INFLIXIMAB
     Route: 042
     Dates: start: 20200719
  3. FOLIC ACID [Concomitant]
     Active Substance: FOLIC ACID
     Indication: Rheumatoid arthritis
  4. METHOTREXATE [Concomitant]
     Active Substance: METHOTREXATE
     Indication: Rheumatoid arthritis
     Dosage: 15 MG, QW, DOSE WAS INCREASED TO 15 MG PER WEEK
  5. TRANDOLAPRIL AND VERAPAMIL HYDROCHLORIDE [Concomitant]
     Active Substance: TRANDOLAPRIL\VERAPAMIL HYDROCHLORIDE
     Indication: Essential hypertension
     Dosage: 240 MG/4 MG
     Route: 065

REACTIONS (1)
  - Tick-borne viral encephalitis [Recovering/Resolving]

NARRATIVE: CASE EVENT DATE: 20190624
